FAERS Safety Report 13405832 (Version 2)
Quarter: 2017Q2

REPORT INFORMATION
  Report Type: Report from Study
  Country: AU (occurrence: AU)
  Receive Date: 20170405
  Receipt Date: 20170417
  Transmission Date: 20170830
  Serious: Yes (Other)
  Sender: FDA-Public Use
  Company Number: AU-REGENERON PHARMACEUTICALS, INC.-2017-13500

PATIENT

DRUGS (1)
  1. EYLEA [Suspect]
     Active Substance: AFLIBERCEPT
     Indication: RETINAL VEIN OCCLUSION
     Dosage: UNK, 5-6 WEEKS
     Route: 031
     Dates: start: 20160204

REACTIONS (4)
  - Eye pain [Unknown]
  - Keratitis [Recovered/Resolved]
  - Blepharitis [Unknown]
  - Cataract [Unknown]

NARRATIVE: CASE EVENT DATE: 20161010
